FAERS Safety Report 16683754 (Version 3)
Quarter: 2019Q3

REPORT INFORMATION
  Report Type: Spontaneous
  Country: CH (occurrence: CH)
  Receive Date: 20190808
  Receipt Date: 20190826
  Transmission Date: 20191004
  Serious: Yes (Other)
  Sender: FDA-Public Use
  Company Number: CH-AMGEN-CHESP2019125654

PATIENT
  Age: 56 Year
  Sex: Male

DRUGS (6)
  1. ISONIAZID. [Suspect]
     Active Substance: ISONIAZID
     Dosage: 300 MG, DAILY
     Route: 048
     Dates: start: 20180406, end: 2018
  2. ISONIAZID. [Suspect]
     Active Substance: ISONIAZID
     Indication: LATENT TUBERCULOSIS
     Dosage: 300 MG, DAILY
     Route: 048
     Dates: start: 201707, end: 20171026
  3. ALENDRONAT [Concomitant]
     Active Substance: ALENDRONATE SODIUM
     Dosage: 70 MG, ONCE A WEEK
     Route: 048
  4. ENBREL [Suspect]
     Active Substance: ETANERCEPT
     Indication: MYALGIA
     Dosage: 50 MG, WEEKLY
     Route: 058
     Dates: start: 201708, end: 20171026
  5. CALCIMAGON-D3 [Concomitant]
     Active Substance: CALCIUM\CHOLECALCIFEROL
     Dosage: 1 DF, 1X/DAY
     Route: 048
  6. SPIRICORT [Concomitant]
     Active Substance: PREDNISOLONE
     Dosage: 1 DF, 1X/DAY, DOSAGE VARIES ACCORDING TO THE EXTENT OF THE SYMPTOMS
     Route: 048

REACTIONS (6)
  - Gamma-glutamyltransferase increased [Recovering/Resolving]
  - Drug-induced liver injury [Recovered/Resolved]
  - Alanine aminotransferase increased [Recovered/Resolved]
  - Off label use [Unknown]
  - Product use in unapproved indication [Unknown]
  - Aspartate aminotransferase increased [Recovered/Resolved]

NARRATIVE: CASE EVENT DATE: 201708
